FAERS Safety Report 9688350 (Version 1)
Quarter: 2013Q4

REPORT INFORMATION
  Report Type: Report from Study
  Country: AR (occurrence: AR)
  Receive Date: 20131114
  Receipt Date: 20131114
  Transmission Date: 20140711
  Serious: Yes (Other)
  Sender: FDA-Public Use
  Company Number: PHHY2013AR130011

PATIENT
  Sex: Female

DRUGS (2)
  1. EXFORGE [Suspect]
     Indication: HYPERTENSION
     Dosage: 1 DF(160/5MG), DAILY
     Route: 048
  2. CRESOL [Concomitant]
     Indication: BLOOD CHOLESTEROL
     Dosage: UNK UKN, UNK

REACTIONS (1)
  - Carotid arteriosclerosis [Unknown]
